FAERS Safety Report 18259785 (Version 1)
Quarter: 2020Q3

REPORT INFORMATION
  Report Type: Spontaneous
  Country: FR (occurrence: FR)
  Receive Date: 20200912
  Receipt Date: 20200912
  Transmission Date: 20201103
  Serious: Yes (Hospitalization, Other)
  Sender: FDA-Public Use
  Company Number: NVSC2020FR233285

PATIENT
  Age: 67 Year
  Sex: Female

DRUGS (2)
  1. PEGFILGRASTIM [Suspect]
     Active Substance: PEGFILGRASTIM
     Route: 065
  2. PEGFILGRASTIM [Suspect]
     Active Substance: PEGFILGRASTIM
     Indication: PROPHYLAXIS
     Route: 065

REACTIONS (6)
  - Febrile neutropenia [Unknown]
  - Mucosal inflammation [Unknown]
  - Asthenia [Unknown]
  - Alopecia [Unknown]
  - Fluid retention [Unknown]
  - Gastritis [Unknown]

NARRATIVE: CASE EVENT DATE: 20200629
